FAERS Safety Report 5032478-7 (Version None)
Quarter: 2006Q2

REPORT INFORMATION
  Report Type: 
  Country: None (occurrence: None)
  Receive Date: 20060622
  Receipt Date: 20060614
  Transmission Date: 20061013
  Serious: Yes (Hospitalization)
  Sender: FDA-Public Use
  Company Number: PHEH2006US07826

PATIENT
  Sex: Female

DRUGS (4)
  1. EXJADE [Suspect]
     Indication: SERUM FERRITIN INCREASED
     Dosage: 1250 MG, QD
     Route: 048
     Dates: start: 20060506, end: 20060601
  2. XANAX [Concomitant]
     Indication: SLEEP DISORDER
     Dosage: 0.25 - 0.5 MG
  3. ALLEGRA [Concomitant]
     Indication: SEASONAL ALLERGY
     Dosage: 180 MG, UNK
  4. FLONASE [Concomitant]
     Indication: SEASONAL ALLERGY

REACTIONS (11)
  - ABDOMINAL PAIN UPPER [None]
  - BLOOD AMYLASE INCREASED [None]
  - BLOOD POTASSIUM DECREASED [None]
  - DEHYDRATION [None]
  - DIARRHOEA [None]
  - DIZZINESS [None]
  - FLATULENCE [None]
  - HYPERHIDROSIS [None]
  - LIPASE INCREASED [None]
  - PULMONARY EMBOLISM [None]
  - WRONG TECHNIQUE IN DRUG USAGE PROCESS [None]
